FAERS Safety Report 9559688 (Version 2)
Quarter: 2013Q4

REPORT INFORMATION
  Report Type: Spontaneous
  Country: ES (occurrence: ES)
  Receive Date: 20130927
  Receipt Date: 20131002
  Transmission Date: 20140711
  Serious: Yes (Other)
  Sender: FDA-Public Use
  Company Number: ES-UCBSA-098863

PATIENT
  Sex: Male
  Weight: 90 kg

DRUGS (4)
  1. VIMPAT [Suspect]
     Dosage: 150-0-100 MG PER DAY
     Route: 048
     Dates: start: 201309
  2. VIMPAT [Suspect]
     Dosage: 150-0-150 MG PER DAY
     Route: 048
     Dates: start: 201308, end: 201309
  3. CARBAMAZEPINE [Concomitant]
     Dates: start: 1997
  4. PHENOBARBITAL [Concomitant]
     Dates: start: 1997

REACTIONS (3)
  - Convulsion [Recovered/Resolved]
  - Local swelling [Recovered/Resolved]
  - Malaise [Unknown]
